FAERS Safety Report 24200654 (Version 2)
Quarter: 2024Q4

REPORT INFORMATION
  Report Type: Spontaneous
  Country: US (occurrence: US)
  Receive Date: 20240812
  Receipt Date: 20241115
  Transmission Date: 20250115
  Serious: Yes (Other)
  Sender: ANI
  Company Number: US-ANIPHARMA-2024-US-039952

PATIENT
  Age: 77 Year
  Sex: Female

DRUGS (13)
  1. CORTICOTROPIN [Suspect]
     Active Substance: CORTICOTROPIN
     Indication: Pulmonary sarcoidosis
     Dosage: NJECT 40 UNITS (0.5ML) SUBCUTANEOUSLY EVERY 72 HOURS / 80 UNITS EVERY 72 HOURS
     Route: 058
  2. ZINC 15 [Concomitant]
  3. VITAMIN D3 [Concomitant]
     Active Substance: CHOLECALCIFEROL
  4. METHOTREXATE SODIUM [Concomitant]
     Active Substance: METHOTREXATE SODIUM
  5. TORSEMIDE [Concomitant]
     Active Substance: TORSEMIDE
  6. PREDNISONE [Suspect]
     Active Substance: PREDNISONE
     Dosage: 5 MG
  7. BENZONATATE [Concomitant]
     Active Substance: BENZONATATE
  8. FOLIC ACID [Concomitant]
     Active Substance: FOLIC ACID
  9. AMBIEN CR [Concomitant]
     Active Substance: ZOLPIDEM TARTRATE
  10. LUNESTA [Concomitant]
     Active Substance: ESZOPICLONE
  11. VITAMIN C [Concomitant]
     Active Substance: ASCORBIC ACID
  12. CALCIUM GLUCONATE [Concomitant]
     Active Substance: CALCIUM GLUCONATE
  13. VITAMIN B COMPLEX [Concomitant]
     Active Substance: CYANOCOBALAMIN\DEXPANTHENOL\NIACINAMIDE\PYRIDOXINE HYDROCHLORIDE\RIBOFLAVIN 5^-PHOSPHATE SODIUM\THIA

REACTIONS (11)
  - Muscular weakness [Not Recovered/Not Resolved]
  - Asthenia [Not Recovered/Not Resolved]
  - Somnolence [Not Recovered/Not Resolved]
  - Peripheral swelling [Not Recovered/Not Resolved]
  - Protein total decreased [Not Recovered/Not Resolved]
  - Anaemia [Not Recovered/Not Resolved]
  - Diabetes mellitus [Unknown]
  - Ageusia [Not Recovered/Not Resolved]
  - Decreased appetite [Not Recovered/Not Resolved]
  - Fatigue [Not Recovered/Not Resolved]
  - Gait disturbance [Not Recovered/Not Resolved]
